FAERS Safety Report 5913154-2 (Version None)
Quarter: 2008Q4

REPORT INFORMATION
  Report Type: 
  Country: None (occurrence: None)
  Receive Date: 20081009
  Receipt Date: 20080929
  Transmission Date: 20090506
  Serious: Yes (Other)
  Sender: FDA-Public Use
  Company Number: FR-JNJFOC-20070804133

PATIENT
  Sex: Male
  Weight: 86 kg

DRUGS (10)
  1. TMC125 [Suspect]
     Indication: HIV INFECTION
     Route: 048
  2. PREZISTA [Suspect]
     Route: 048
  3. PREZISTA [Suspect]
     Indication: HIV INFECTION
     Route: 048
  4. NORVIR [Suspect]
     Indication: HIV INFECTION
     Route: 048
  5. MK-0518 [Suspect]
     Indication: HIV INFECTION
     Route: 048
  6. CRESTOR [Suspect]
     Indication: HYPERLIPIDAEMIA
     Route: 048
  7. TRIZIVIR [Suspect]
     Indication: HIV INFECTION
     Route: 048
  8. TAHOR [Suspect]
     Indication: HYPERLIPIDAEMIA
     Route: 048
  9. BACTRIM [Concomitant]
     Indication: PROPHYLAXIS
     Route: 065
  10. CELIPROLOL [Concomitant]
     Route: 065

REACTIONS (1)
  - BLOOD CREATINE PHOSPHOKINASE INCREASED [None]
